FAERS Safety Report 23090798 (Version 6)
Quarter: 2024Q3

REPORT INFORMATION
  Report Type: Report from Study
  Country: CN (occurrence: CN)
  Receive Date: 20231020
  Receipt Date: 20240906
  Transmission Date: 20241016
  Serious: Yes (Hospitalization, Other)
  Sender: RANBAXY
  Company Number: CN-SUN PHARMACEUTICAL INDUSTRIES LTD-2023R1-413307

PATIENT
  Age: 76 Year
  Sex: Male
  Weight: 63.5 kg

DRUGS (2)
  1. SONIDEGIB [Suspect]
     Active Substance: SONIDEGIB
     Indication: Basal cell carcinoma
     Dosage: 200 MILLIGRAM, QD
     Route: 048
     Dates: start: 20230811, end: 20231008
  2. NIFEDIPINE [Concomitant]
     Active Substance: NIFEDIPINE
     Indication: Hypertension
     Dosage: 20 MILLIGRAM, QD
     Route: 048
     Dates: start: 2015

REACTIONS (8)
  - Intestinal obstruction [Recovered/Resolved]
  - Cystic lung disease [Unknown]
  - Nephrolithiasis [Unknown]
  - Large intestine polyp [Unknown]
  - Rectal polyp [Unknown]
  - Pneumonia [Unknown]
  - Lung abscess [Unknown]
  - Cough [Unknown]

NARRATIVE: CASE EVENT DATE: 20231005
